FAERS Safety Report 7303797-6 (Version None)
Quarter: 2011Q1

REPORT INFORMATION
  Report Type: 
  Country: None (occurrence: None)
  Receive Date: 20110221
  Receipt Date: 20110208
  Transmission Date: 20110831
  Serious: Yes (Hospitalization)
  Sender: FDA-Public Use
  Company Number: US-ROCHE-759181

PATIENT
  Sex: Female
  Weight: 129.2 kg

DRUGS (9)
  1. KYTRIL [Concomitant]
  2. BEVACIZUMAB [Suspect]
     Indication: GLIOBLASTOMA
     Route: 065
  3. LORAZEPAM [Concomitant]
     Dosage: PRN
  4. SENOKOT [Concomitant]
  5. IRINOTECAN [Suspect]
     Indication: GLIOBLASTOMA
     Route: 065
     Dates: start: 20100719
  6. KEPPRA [Concomitant]
  7. FAMOTIDINE [Concomitant]
     Dosage: FREQUENCY: PRN
  8. PERCOCET [Concomitant]
     Dosage: 10/32 MG Q3 N PRN
  9. GLIADEL [Suspect]
     Indication: GLIOBLASTOMA
     Route: 065
     Dates: start: 20100527

REACTIONS (2)
  - TREMOR [None]
  - MENTAL STATUS CHANGES [None]
